FAERS Safety Report 19435593 (Version 1)
Quarter: 2021Q2

REPORT INFORMATION
  Report Type: Spontaneous
  Country: US (occurrence: US)
  Receive Date: 20210618
  Receipt Date: 20210618
  Transmission Date: 20210717
  Serious: Yes (Other)
  Sender: FDA-Public Use
  Company Number: US-009507513-2106USA004162

PATIENT
  Age: 58 Year
  Sex: Male

DRUGS (2)
  1. KEYTRUDA [Suspect]
     Active Substance: PEMBROLIZUMAB
     Indication: METASTATIC MALIGNANT MELANOMA
     Dosage: 200 MG EVERY 21 DAYS
  2. IPILIMUMAB [Suspect]
     Active Substance: IPILIMUMAB
     Indication: MALIGNANT NEOPLASM PROGRESSION
     Dosage: 3 MG/KG EVERY 21 DAYS

REACTIONS (2)
  - Immune-mediated dermatitis [Recovered/Resolved]
  - Toxic skin eruption [Recovered/Resolved]
